FAERS Safety Report 9524645 (Version 2)
Quarter: 2013Q4

REPORT INFORMATION
  Report Type: Spontaneous
  Country: GB (occurrence: GB)
  Receive Date: 20130916
  Receipt Date: 20131010
  Transmission Date: 20140711
  Serious: Yes (Other)
  Sender: FDA-Public Use
  Company Number: GB-PFIZER INC-2013263637

PATIENT
  Age: 47 Year
  Sex: Female

DRUGS (3)
  1. LYRICA [Suspect]
     Indication: ANXIETY
     Dosage: 600 MG, 2X/DAY
     Route: 048
  2. LYRICA [Suspect]
     Dosage: INCREASED UP TO 2000MG DAILY
  3. ZOPICLONE [Concomitant]
     Dosage: 15 MG, 1X/DAY

REACTIONS (3)
  - Intentional overdose [Unknown]
  - Drug abuse [Unknown]
  - Withdrawal syndrome [Unknown]
